FAERS Safety Report 14900014 (Version 1)
Quarter: 2018Q2

REPORT INFORMATION
  Report Type: Spontaneous
  Country: US (occurrence: US)
  Receive Date: 20180516
  Receipt Date: 20180516
  Transmission Date: 20180711
  Serious: No
  Sender: FDA-Public Use
  Company Number: US-TEVA-2018-US-887714

PATIENT
  Age: 6 Year
  Sex: Female

DRUGS (1)
  1. IMATINIB [Suspect]
     Active Substance: IMATINIB
     Indication: FIBRODYSPLASIA OSSIFICANS PROGRESSIVA
     Route: 065

REACTIONS (2)
  - Off label use [Recovered/Resolved]
  - Nausea [Recovered/Resolved]
